FAERS Safety Report 9159906 (Version 7)
Quarter: 2013Q2

REPORT INFORMATION
  Report Type: Spontaneous
  Country: US (occurrence: None)
  Receive Date: 20130212
  Receipt Date: 20130618
  Transmission Date: 20140414
  Serious: Yes (Hospitalization, Other)
  Sender: FDA-Public Use
  Company Number: 2013P1002049

PATIENT
  Age: 61 Year
  Sex: Female

DRUGS (6)
  1. DIGOXIN [Suspect]
  2. EPOPROSTENOL SODIUM [Suspect]
     Indication: PULMONARY ARTERIAL HYPERTENSION
     Dosage: 80 NG/KG/MIN; IV
     Route: 042
     Dates: start: 20000306
  3. WARFARIN SODIUM [Concomitant]
  4. FRUSEMIDE [Concomitant]
  5. CARVEDILOL [Concomitant]
  6. TAMSULOSIN [Concomitant]

REACTIONS (5)
  - Eye haemorrhage [None]
  - Nasopharyngitis [None]
  - Overdose [None]
  - Toxicity to various agents [None]
  - Confusional state [None]
